FAERS Safety Report 24653994 (Version 1)
Quarter: 2024Q4

REPORT INFORMATION
  Report Type: Spontaneous
  Country: US (occurrence: US)
  Receive Date: 20241122
  Receipt Date: 20241122
  Transmission Date: 20250115
  Serious: No
  Sender: Harrow Health
  Company Number: US-IMP-2024001001

PATIENT
  Sex: Female

DRUGS (2)
  1. VEVYE [Suspect]
     Active Substance: CYCLOSPORINE
     Indication: Product used for unknown indication
     Route: 047
  2. DOXYCYCLINE [Concomitant]
     Active Substance: DOXYCYCLINE
     Indication: Product used for unknown indication
     Dosage: ONE TABLET TWICE A DAY
     Route: 065

REACTIONS (1)
  - Instillation site irritation [Unknown]
